FAERS Safety Report 4360159-1 (Version None)
Quarter: 2004Q2

REPORT INFORMATION
  Report Type: 
  Country: None (occurrence: None)
  Receive Date: 20040518
  Receipt Date: 20040518
  Transmission Date: 20050107
  Serious: Yes (Other)
  Sender: FDA-Public Use
  Company Number: None

PATIENT
  Age: 53 Year
  Sex: Female
  Weight: 76.6579 kg

DRUGS (1)
  1. VICODIN [Suspect]
     Indication: BACK PAIN
     Dosage: 1 EVERY 4-6 HOURS

REACTIONS (1)
  - VOMITING [None]
